FAERS Safety Report 15034675 (Version 1)
Quarter: 2018Q2

REPORT INFORMATION
  Report Type: Spontaneous
  Country: GB (occurrence: GB)
  Receive Date: 20180620
  Receipt Date: 20180620
  Transmission Date: 20180711
  Serious: Yes (Disabling)
  Sender: FDA-Public Use
  Company Number: GB-TEVA-2018-GB-909847

PATIENT
  Age: 91 Year
  Sex: Female

DRUGS (11)
  1. MEMANTINE. [Concomitant]
     Active Substance: MEMANTINE
     Dosage: 20 MILLIGRAM DAILY;
  2. CASSIA [Concomitant]
     Dosage: 15 MILLIGRAM DAILY; NIGHT.
  3. GABAPENTIN. [Suspect]
     Active Substance: GABAPENTIN
     Dosage: 300 MILLIGRAM DAILY; TO INCREASE TO THREE TIMES A DAY.
  4. ZOPICLONE [Concomitant]
     Active Substance: ZOPICLONE
     Dosage: 7.5 MILLIGRAM DAILY; NIGHT.
  5. OMEPRAZOLE. [Concomitant]
     Active Substance: OMEPRAZOLE
     Dosage: 20 MILLIGRAM DAILY;
  6. DOCUSATE [Concomitant]
     Active Substance: DOCUSATE
     Dosage: 400 MILLIGRAM DAILY;
  7. ADCAL-D3 [Concomitant]
     Active Substance: CALCIUM CARBONATE\CHOLECALCIFEROL
     Dosage: 2 DOSAGE FORMS DAILY;
  8. DONEPEZIL. [Concomitant]
     Active Substance: DONEPEZIL
     Dosage: NIGHT.
  9. QVAR [Concomitant]
     Active Substance: BECLOMETHASONE DIPROPIONATE
     Dosage: 4 DOSAGE FORMS DAILY;
     Route: 055
  10. SALBUTAMOL [Concomitant]
     Active Substance: ALBUTEROL
  11. VENLAFAXINE [Concomitant]
     Active Substance: VENLAFAXINE HYDROCHLORIDE
     Dosage: 150 MILLIGRAM DAILY;

REACTIONS (2)
  - Confusional state [Recovered/Resolved]
  - Incoherent [Recovered/Resolved]
